FAERS Safety Report 12175404 (Version 1)
Quarter: 2016Q1

REPORT INFORMATION
  Report Type: Spontaneous
  Country: IT (occurrence: IT)
  Receive Date: 20160314
  Receipt Date: 20160314
  Transmission Date: 20160526
  Serious: Yes (Death, Hospitalization)
  Sender: FDA-Public Use
  Company Number: IT-JNJFOC-20160305803

PATIENT
  Age: 78 Year
  Sex: Male

DRUGS (1)
  1. INFLIXIMAB, RECOMBINANT [Suspect]
     Active Substance: INFLIXIMAB
     Indication: HIDRADENITIS
     Route: 042

REACTIONS (5)
  - Bacterial sepsis [Fatal]
  - Off label use [Unknown]
  - Therapeutic response unexpected [Unknown]
  - Squamous cell carcinoma [Not Recovered/Not Resolved]
  - Product use issue [Unknown]
